FAERS Safety Report 7908676-9 (Version None)
Quarter: 2011Q4

REPORT INFORMATION
  Report Type: 
  Country: None (occurrence: None)
  Receive Date: 20111111
  Receipt Date: 20111109
  Transmission Date: 20120403
  Serious: Yes (Other)
  Sender: FDA-Public Use
  Company Number: PHHY2011NL83727

PATIENT
  Sex: Female

DRUGS (1)
  1. ZOMETA [Suspect]
     Indication: BREAST CANCER METASTATIC
     Dosage: 4 MG/5ML ONCE PER 28 DAYS
     Dates: start: 20110916

REACTIONS (5)
  - ABDOMINAL PAIN UPPER [None]
  - CYSTITIS [None]
  - MYALGIA [None]
  - MALAISE [None]
  - NAUSEA [None]
